FAERS Safety Report 16539900 (Version 3)
Quarter: 2019Q4

REPORT INFORMATION
  Report Type: Spontaneous
  Country: US (occurrence: US)
  Receive Date: 20190708
  Receipt Date: 20191009
  Transmission Date: 20200122
  Serious: No
  Sender: FDA-Public Use
  Company Number: US-PFIZER INC-2019287779

PATIENT
  Age: 62 Year
  Sex: Female

DRUGS (2)
  1. AROMASIN [Suspect]
     Active Substance: EXEMESTANE
     Indication: BREAST CANCER FEMALE
     Dosage: 25 MG, UNK
  2. AROMASIN [Suspect]
     Active Substance: EXEMESTANE
     Dosage: 20 MG, 1X/DAY
     Dates: start: 201501

REACTIONS (1)
  - Bronchitis [Recovering/Resolving]
